FAERS Safety Report 16254839 (Version 1)
Quarter: 2019Q2

REPORT INFORMATION
  Report Type: Spontaneous
  Country: UM (occurrence: UM)
  Receive Date: 20190429
  Receipt Date: 20190429
  Transmission Date: 20190711
  Serious: Yes (Disabling)
  Sender: FDA-Public Use
  Company Number: None

PATIENT
  Age: 61 Year
  Sex: Male
  Weight: 74.25 kg

DRUGS (1)
  1. LEVOFLOXICIN [Suspect]
     Active Substance: LEVOFLOXACIN
     Indication: INFECTED CYST
     Route: 048
     Dates: start: 20170901, end: 20170905

REACTIONS (10)
  - Feeling abnormal [None]
  - Dry eye [None]
  - Paranasal sinus hyposecretion [None]
  - Homeless [None]
  - Tendon pain [None]
  - Arthralgia [None]
  - Musculoskeletal pain [None]
  - Gait inability [None]
  - Neck pain [None]
  - Hypokinesia [None]

NARRATIVE: CASE EVENT DATE: 20170901
